FAERS Safety Report 4630297-4 (Version None)
Quarter: 2005Q2

REPORT INFORMATION
  Report Type: 
  Country: None (occurrence: None)
  Receive Date: 20050408
  Receipt Date: 20050401
  Transmission Date: 20051028
  Serious: Yes (Hospitalization)
  Sender: FDA-Public Use
  Company Number: 200512651US

PATIENT
  Sex: Male

DRUGS (4)
  1. KETEK [Suspect]
     Indication: COUGH
     Dosage: DOSE: NOT PROVIDED
     Route: 048
     Dates: start: 20050325, end: 20050327
  2. COUMADIN [Suspect]
     Dosage: DOSE: NOT PROVIDED
  3. DIGOXIN [Concomitant]
     Dosage: DOSE: NOT PROVIDED
  4. LISINOPRIL [Concomitant]
     Dosage: DOSE: NOT PROVIDED

REACTIONS (3)
  - HAEMOGLOBIN DECREASED [None]
  - INTERNATIONAL NORMALISED RATIO INCREASED [None]
  - RETROPERITONEAL HAEMATOMA [None]
